FAERS Safety Report 4533213-9 (Version None)
Quarter: 2004Q4

REPORT INFORMATION
  Report Type: 
  Country: None (occurrence: None)
  Receive Date: 20041206
  Receipt Date: 20041101
  Transmission Date: 20050328
  Serious: No
  Sender: FDA-Public Use
  Company Number: USA041082189

PATIENT
  Sex: Female

DRUGS (10)
  1. CYMBALTA [Suspect]
     Indication: FIBROMYALGIA
     Dosage: 60 MG DAY
     Dates: start: 20041009
  2. PROZAC [Suspect]
  3. THYROID TAB [Concomitant]
  4. MORPHINE SULFATE [Concomitant]
  5. LORAZEPAM [Concomitant]
  6. FLEXERIL [Concomitant]
  7. LIBRAX [Concomitant]
  8. METOCLOPRAMIDE [Concomitant]
  9. AMBIEN [Concomitant]
  10. RITALIN [Concomitant]

REACTIONS (7)
  - ABDOMINAL PAIN UPPER [None]
  - DERMATITIS ALLERGIC [None]
  - FATIGUE [None]
  - FEELING ABNORMAL [None]
  - NAUSEA [None]
  - RASH [None]
  - RESTLESSNESS [None]
